FAERS Safety Report 10617229 (Version 1)
Quarter: 2014Q4

REPORT INFORMATION
  Report Type: Spontaneous
  Country: US (occurrence: US)
  Receive Date: 20141201
  Receipt Date: 20141201
  Transmission Date: 20150529
  Serious: Yes (Other)
  Sender: FDA-Public Use
  Company Number: US-BAYER-2014-174658

PATIENT
  Age: 31 Year
  Sex: Female

DRUGS (1)
  1. MIRENA [Suspect]
     Active Substance: LEVONORGESTREL
     Indication: CONTRACEPTION
     Dosage: 20 MCG/24HR, CONT
     Route: 015
     Dates: start: 201404

REACTIONS (17)
  - Acne [None]
  - Dry skin [None]
  - Nervousness [None]
  - Feeling jittery [None]
  - Weight loss poor [None]
  - Vaginal haemorrhage [None]
  - Alopecia [None]
  - Weight increased [None]
  - Pain [None]
  - Headache [None]
  - Hypoaesthesia [None]
  - Onychoclasis [None]
  - Depression [None]
  - Vision blurred [None]
  - Photophobia [None]
  - Tremor [None]
  - Breast pain [None]

NARRATIVE: CASE EVENT DATE: 2014
